FAERS Safety Report 20818610 (Version 1)
Quarter: 2022Q2

REPORT INFORMATION
  Report Type: Spontaneous
  Country: FR (occurrence: FR)
  Receive Date: 20220512
  Receipt Date: 20220512
  Transmission Date: 20220720
  Serious: Yes (Hospitalization, Other)
  Sender: FDA-Public Use
  Company Number: None

PATIENT
  Age: 9 Year
  Sex: Female

DRUGS (2)
  1. FLUTICASONE PROPIONATE [Suspect]
     Active Substance: FLUTICASONE PROPIONATE
     Indication: Eczema eyelids
     Dosage: UNK (UNKNOWN)
     Route: 003
     Dates: start: 202201, end: 202202
  2. TIXOCORTOL PIVALATE [Suspect]
     Active Substance: TIXOCORTOL PIVALATE
     Indication: Rhinitis
     Dosage: UNK (UNKNOWN)
     Route: 045
     Dates: start: 202112, end: 202112

REACTIONS (2)
  - Ocular hypertension [Recovered/Resolved]
  - Papilloedema [Recovered/Resolved]
